FAERS Safety Report 6863097-5 (Version None)
Quarter: 2010Q3

REPORT INFORMATION
  Report Type: 
  Country: None (occurrence: None)
  Receive Date: 20100721
  Receipt Date: 20100713
  Transmission Date: 20110219
  Serious: Yes (Death)
  Sender: FDA-Public Use
  Company Number: DE-BAXTER-2010BH018911

PATIENT
  Sex: Male
  Weight: 5 kg

DRUGS (2)
  1. BREVIBLOC [Suspect]
     Indication: PRODUCT USED FOR UNKNOWN INDICATION
     Route: 065
     Dates: start: 20100101, end: 20100101
  2. BREVIBLOC [Suspect]
     Indication: OFF LABEL USE
     Route: 065
     Dates: start: 20100101, end: 20100101

REACTIONS (1)
  - MULTI-ORGAN FAILURE [None]
